FAERS Safety Report 10023456 (Version 1)
Quarter: 2014Q1

REPORT INFORMATION
  Report Type: Spontaneous
  Country: US (occurrence: None)
  Receive Date: 20140319
  Receipt Date: 20140319
  Transmission Date: 20141002
  Serious: Yes (Other)
  Sender: FDA-Public Use
  Company Number: None

PATIENT
  Age: 69 Year
  Sex: Male
  Weight: 109.32 kg

DRUGS (1)
  1. TAMSULOSIN [Suspect]
     Indication: BENIGN PROSTATIC HYPERPLASIA
     Dosage: 1 PILL PER DAY
     Route: 048
     Dates: start: 20140308, end: 20140318

REACTIONS (4)
  - Therapeutic response decreased [None]
  - Product quality issue [None]
  - Urinary retention [None]
  - Pollakiuria [None]
